FAERS Safety Report 7867506-4 (Version None)
Quarter: 2011Q4

REPORT INFORMATION
  Report Type: 
  Country: None (occurrence: None)
  Receive Date: 20111028
  Receipt Date: 20111017
  Transmission Date: 20120403
  Serious: Yes (Hospitalization)
  Sender: FDA-Public Use
  Company Number: PHEH2011US07255

PATIENT
  Sex: Female

DRUGS (5)
  1. CHOLESTEROL [Concomitant]
  2. LISINOPRIL AND HYDROCHLOROTHIAZIDE [Concomitant]
  3. THYROID TAB [Concomitant]
  4. TEKTURNA [Suspect]
     Indication: HYPERTENSION
     Dosage: 300 MG, QD
     Route: 048
     Dates: start: 20111010, end: 20111013
  5. MICARDIS [Concomitant]

REACTIONS (2)
  - HYPONATRAEMIA [None]
  - NAUSEA [None]
